FAERS Safety Report 22009979 (Version 1)
Quarter: 2023Q1

REPORT INFORMATION
  Report Type: Report from Study
  Country: BR (occurrence: BR)
  Receive Date: 20230220
  Receipt Date: 20230220
  Transmission Date: 20230418
  Serious: Yes (Hospitalization, Other)
  Sender: FDA-Public Use
  Company Number: BR-GBT-020178

PATIENT
  Age: 45 Year
  Sex: Male
  Weight: 65 kg

DRUGS (3)
  1. VOXELOTOR [Suspect]
     Active Substance: VOXELOTOR
     Indication: Sickle cell disease
     Dosage: ON 06-NOV-2022, THE SUBJECT RECEIVED THE LAST DOSE OF VOXELOTOR PRIOR TO EVENT ONSET.
     Route: 048
     Dates: start: 20220919
  2. HYDROXYUREA [Suspect]
     Active Substance: HYDROXYUREA
     Indication: Sickle cell anaemia with crisis
     Route: 048
     Dates: start: 2018, end: 2022
  3. HYDROXYUREA [Suspect]
     Active Substance: HYDROXYUREA
     Indication: Sickle cell anaemia with crisis
     Route: 048
     Dates: start: 2022

REACTIONS (4)
  - Priapism [Recovered/Resolved]
  - Dyspnoea [Recovered/Resolved]
  - Pain [Recovered/Resolved]
  - Neutropenia [Not Recovered/Not Resolved]

NARRATIVE: CASE EVENT DATE: 20221017
